FAERS Safety Report 4837955-7 (Version None)
Quarter: 2005Q4

REPORT INFORMATION
  Report Type: 
  Country: None (occurrence: None)
  Receive Date: 20051123
  Receipt Date: 20051123
  Transmission Date: 20060501
  Serious: Yes (Hospitalization, Other)
  Sender: FDA-Public Use
  Company Number: None

PATIENT
  Sex: Female
  Weight: 63 kg

DRUGS (1)
  1. PROSTATIN [Suspect]
     Indication: INTRA-UTERINE DEATH
     Dosage: 20 MG (1 SUPP) Q 3 HOURS VAGINAL
     Route: 067
     Dates: start: 20051115, end: 20051117

REACTIONS (1)
  - UNEVALUABLE EVENT [None]
